FAERS Safety Report 9790138 (Version 1)
Quarter: 2013Q4

REPORT INFORMATION
  Report Type: Spontaneous
  Country: NO (occurrence: NO)
  Receive Date: 20131231
  Receipt Date: 20131231
  Transmission Date: 20140711
  Serious: Yes (Hospitalization, Disabling, Other)
  Sender: FDA-Public Use
  Company Number: NO-BAYER-2013-154158

PATIENT
  Age: 66 Year
  Sex: Male

DRUGS (7)
  1. CIPROXIN IV FLEXIBAG [Suspect]
     Indication: URINARY RETENTION
     Dosage: 400 MG, UNK
     Dates: start: 20120814, end: 20120823
  2. CIPROXIN IV FLEXIBAG [Suspect]
     Indication: C-REACTIVE PROTEIN INCREASED
  3. CIPROXIN IV FLEXIBAG [Suspect]
     Indication: INFECTION
  4. CIPROXIN 500 MG FILMCOATED TABLETS [Suspect]
     Dosage: UNK
     Route: 048
     Dates: start: 20120823, end: 20120825
  5. SOMAC [Concomitant]
     Dosage: 40 MG, UNK
  6. MAREVAN [Concomitant]
     Indication: ANTICOAGULANT THERAPY
     Dosage: UNK
  7. OMNIC [Concomitant]
     Dosage: 0.4 MG, UNK

REACTIONS (4)
  - Encephalitis [None]
  - Deafness [Not Recovered/Not Resolved]
  - Deafness [Recovered/Resolved with Sequelae]
  - Pyrexia [None]
